FAERS Safety Report 13898772 (Version 2)
Quarter: 2017Q3

REPORT INFORMATION
  Report Type: Spontaneous
  Country: US (occurrence: US)
  Receive Date: 20170824
  Receipt Date: 20170914
  Transmission Date: 20171127
  Serious: Yes (Hospitalization, Other)
  Sender: FDA-Public Use
  Company Number: US-GLAXOSMITHKLINE-US2017127542

PATIENT
  Age: 76 Year
  Sex: Male

DRUGS (14)
  1. ASPIRIN (BABY) [Concomitant]
     Active Substance: ASPIRIN
  2. ATORVASTATIN [Concomitant]
     Active Substance: ATORVASTATIN
  3. DORZOLAMIDE [Concomitant]
     Active Substance: DORZOLAMIDE
  4. LANTUS [Concomitant]
     Active Substance: INSULIN GLARGINE
  5. LATANOPROST. [Concomitant]
     Active Substance: LATANOPROST
  6. COLACE [Concomitant]
     Active Substance: DOCUSATE SODIUM
  7. CYMBALTA [Concomitant]
     Active Substance: DULOXETINE HYDROCHLORIDE
  8. VITAMIN D 3 [Concomitant]
  9. MELATONIN [Concomitant]
     Active Substance: MELATONIN
  10. ADVAIR DISKUS [Suspect]
     Active Substance: FLUTICASONE PROPIONATE\SALMETEROL XINAFOATE
     Indication: ASTHMA
     Dosage: 1 PUFF(S), BID
     Route: 055
     Dates: start: 2007
  11. ADVAIR DISKUS [Suspect]
     Active Substance: FLUTICASONE PROPIONATE\SALMETEROL XINAFOATE
     Indication: CHRONIC OBSTRUCTIVE PULMONARY DISEASE
  12. HUMALOG [Concomitant]
     Active Substance: INSULIN LISPRO
  13. METFORMIN [Concomitant]
     Active Substance: METFORMIN HYDROCHLORIDE
  14. LISINOPRIL. [Concomitant]
     Active Substance: LISINOPRIL

REACTIONS (8)
  - Vertigo [Recovering/Resolving]
  - Pulmonary contusion [Recovering/Resolving]
  - Dizziness [Unknown]
  - Walking aid user [Unknown]
  - Fall [Unknown]
  - Rib fracture [Recovering/Resolving]
  - Brain neoplasm [Not Recovered/Not Resolved]
  - Gait disturbance [Unknown]

NARRATIVE: CASE EVENT DATE: 2015
